FAERS Safety Report 7517256-9 (Version None)
Quarter: 2011Q2

REPORT INFORMATION
  Report Type: 
  Country: None (occurrence: None)
  Receive Date: 20110601
  Receipt Date: 20110524
  Transmission Date: 20111010
  Serious: Yes (Other)
  Sender: FDA-Public Use
  Company Number: US-ASTRAZENECA-2011SE32004

PATIENT
  Age: 53 Year
  Sex: Female

DRUGS (16)
  1. VICODIN ES [Concomitant]
     Dosage: 7.5 - 750 MG  ONE TAB PO Q 4 HRS PRN
     Route: 048
     Dates: start: 20050418
  2. ALDACTONE [Concomitant]
     Route: 048
     Dates: start: 20050418
  3. ZANTAC [Concomitant]
     Route: 048
     Dates: start: 20050418
  4. PAXIL CR [Concomitant]
     Dosage: 24 HR 37.5 MG 1 BID
     Route: 048
     Dates: start: 20050418
  5. HALCION [Concomitant]
     Route: 048
     Dates: start: 20050418
  6. NITROGLYCERIN C.R. [Concomitant]
     Route: 048
     Dates: start: 20050418
  7. ROBAXIN [Concomitant]
     Dosage: 500 MG 1 Q6H P.R.N
     Route: 048
     Dates: start: 20050418
  8. LIBRIUM [Concomitant]
     Route: 048
     Dates: start: 20050418
  9. XANAX [Concomitant]
     Dates: start: 20060201
  10. DOLOPHINE HCL [Concomitant]
     Dosage: 10 MG 1Q6H
     Route: 048
     Dates: start: 20050418
  11. CEPHALEXIN [Concomitant]
     Route: 048
     Dates: start: 20050418
  12. ZAROXOLYN [Concomitant]
     Route: 048
     Dates: start: 20050418
  13. SYNTHROID [Concomitant]
     Dosage: 300 MCG 1 QD
     Route: 048
     Dates: start: 20050418
  14. BUMEX [Concomitant]
     Route: 048
     Dates: start: 20050418
  15. SEROQUEL [Suspect]
     Route: 048
     Dates: start: 20050418
  16. METHADONE HCL [Concomitant]
     Indication: PAIN
     Dosage: 20 Q 8
     Dates: start: 20060201

REACTIONS (9)
  - CHEST DISCOMFORT [None]
  - PERIPHERAL VASCULAR DISORDER [None]
  - OEDEMA PERIPHERAL [None]
  - HYPERLIPIDAEMIA [None]
  - DIABETES MELLITUS [None]
  - MYOCARDIAL INFARCTION [None]
  - EMPHYSEMA [None]
  - PAIN IN EXTREMITY [None]
  - CARDIAC FAILURE CONGESTIVE [None]
